FAERS Safety Report 11849465 (Version 1)
Quarter: 2015Q4

REPORT INFORMATION
  Report Type: Spontaneous
  Country: US (occurrence: None)
  Receive Date: 20151217
  Receipt Date: 20151217
  Transmission Date: 20160305
  Serious: Yes (Other)
  Sender: FDA-Public Use
  Company Number: None

PATIENT
  Age: 47 Year
  Sex: Female
  Weight: 97.07 kg

DRUGS (6)
  1. TRAMADOL. [Concomitant]
     Active Substance: TRAMADOL
  2. PERCACET [Concomitant]
  3. SIMPONI [Suspect]
     Active Substance: GOLIMUMAB
     Indication: PSORIATIC ARTHROPATHY
     Dosage: INTO THE MUSCLE
     Dates: start: 20150731, end: 20150831
  4. RAMIPRIL. [Concomitant]
     Active Substance: RAMIPRIL
  5. SIMPONI [Suspect]
     Active Substance: GOLIMUMAB
     Indication: RHEUMATOID ARTHRITIS
     Dosage: INTO THE MUSCLE
     Dates: start: 20150731, end: 20150831
  6. IBUPROFEN. [Concomitant]
     Active Substance: IBUPROFEN

REACTIONS (7)
  - Blister [None]
  - Skin irritation [None]
  - Rash generalised [None]
  - Herpes zoster [None]
  - Erythema [None]
  - Pustular psoriasis [None]
  - Dermatitis contact [None]

NARRATIVE: CASE EVENT DATE: 20150910
